FAERS Safety Report 6634851-X (Version None)
Quarter: 2010Q1

REPORT INFORMATION
  Report Type: 
  Country: None (occurrence: None)
  Receive Date: 20100311
  Receipt Date: 20100311
  Transmission Date: 20100710
  Serious: No
  Sender: FDA-Public Use
  Company Number: None

PATIENT
  Age: 34 Year
  Sex: Female
  Weight: 65.7716 kg

DRUGS (1)
  1. YAZ [Suspect]
     Indication: MENOPAUSAL SYMPTOMS
     Dosage: 1 PILL DAILY DENTAL
     Route: 004
     Dates: start: 20090427, end: 20090701

REACTIONS (17)
  - ARTHRALGIA [None]
  - BACK PAIN [None]
  - BASEDOW'S DISEASE [None]
  - CHEST PAIN [None]
  - COUGH [None]
  - DEVICE EXPULSION [None]
  - DRY EYE [None]
  - DRY MOUTH [None]
  - DRY THROAT [None]
  - FATIGUE [None]
  - HEADACHE [None]
  - MENORRHAGIA [None]
  - MUSCLE SPASMS [None]
  - MUSCULOSKELETAL PAIN [None]
  - NASAL DRYNESS [None]
  - PAIN IN EXTREMITY [None]
  - PELVIC PAIN [None]
